FAERS Safety Report 10661417 (Version 2)
Quarter: 2015Q1

REPORT INFORMATION
  Report Type: Spontaneous
  Country: GB (occurrence: None)
  Receive Date: 20141216
  Receipt Date: 20150120
  Transmission Date: 20150720
  Serious: Yes (Life-Threatening, Hospitalization, Disabling, Other)
  Sender: FDA-Public Use
  Company Number: FK201406055

PATIENT
  Age: 2 Year
  Sex: Female

DRUGS (2)
  1. ACETYLCYSTEINE (MANUFACTURER UNKNOWN) (ACETYLCYSTEINE) (ACETYLCYSTEINE) [Suspect]
     Active Substance: ACETYLCYSTEINE
     Indication: ACCIDENTAL EXPOSURE TO PRODUCT
     Route: 042
  2. PARACETAMOL [Concomitant]
     Active Substance: ACETAMINOPHEN

REACTIONS (9)
  - Blindness cortical [None]
  - Parainfluenzae virus infection [None]
  - Blood pressure decreased [None]
  - Anaphylactic reaction [None]
  - Respiratory syncytial virus infection [None]
  - Tachycardia [None]
  - Partial seizures with secondary generalisation [None]
  - Encephalopathy [None]
  - Infusion related reaction [None]
